FAERS Safety Report 7238903-5 (Version None)
Quarter: 2011Q1

REPORT INFORMATION
  Report Type: 
  Country: None (occurrence: None)
  Receive Date: 20110121
  Receipt Date: 20110119
  Transmission Date: 20110831
  Serious: Yes (Death, Hospitalization)
  Sender: FDA-Public Use
  Company Number: PHHY2011US01074

PATIENT
  Sex: Female
  Weight: 81.4 kg

DRUGS (2)
  1. RECLAST [Suspect]
     Dosage: 5 MG
     Dates: start: 20100126
  2. ANTIARRHYTHMICS [Concomitant]

REACTIONS (2)
  - DEATH [None]
  - GENERAL PHYSICAL HEALTH DETERIORATION [None]
